FAERS Safety Report 4674117-0 (Version None)
Quarter: 2005Q2

REPORT INFORMATION
  Report Type: 
  Country: None (occurrence: None)
  Receive Date: 20050524
  Receipt Date: 20050524
  Transmission Date: 20051028
  Serious: Yes (Other)
  Sender: FDA-Public Use
  Company Number: None

PATIENT
  Sex: Male
  Weight: 91.6266 kg

DRUGS (1)
  1. DITROPAN [Suspect]
     Indication: HYPERTONIC BLADDER
     Dosage: 3 TIMES DAILY
     Dates: start: 20050514, end: 20050517

REACTIONS (6)
  - BALANCE DISORDER [None]
  - DYSPNOEA [None]
  - HEADACHE [None]
  - MICTURITION DISORDER [None]
  - NAUSEA [None]
  - SENSATION OF PRESSURE [None]
